FAERS Safety Report 20658956 (Version 1)
Quarter: 2022Q1

REPORT INFORMATION
  Report Type: Report from Study
  Country: CA (occurrence: CA)
  Receive Date: 20220331
  Receipt Date: 20220331
  Transmission Date: 20220423
  Serious: Yes (Other)
  Sender: FDA-Public Use
  Company Number: CA-ABBVIE-22K-028-4338416-00

PATIENT
  Age: 60 Year
  Sex: Female
  Weight: 66.5 kg

DRUGS (1)
  1. RINVOQ [Suspect]
     Active Substance: UPADACITINIB
     Indication: Psoriatic arthropathy
     Route: 048
     Dates: start: 20220301, end: 20220308

REACTIONS (1)
  - Retinal artery thrombosis [Not Recovered/Not Resolved]

NARRATIVE: CASE EVENT DATE: 20220308
